FAERS Safety Report 9713073 (Version 2)
Quarter: 2014Q2

REPORT INFORMATION
  Report Type: Spontaneous
  Country: US (occurrence: US)
  Receive Date: 20131126
  Receipt Date: 20140510
  Transmission Date: 20141212
  Serious: No
  Sender: FDA-Public Use
  Company Number: US-BRISTOL-MYERS SQUIBB COMPANY-19412329

PATIENT
  Age: 55 Year
  Sex: Female
  Weight: 90.7 kg

DRUGS (3)
  1. BYDUREON  2MG SUSPENSION [Suspect]
     Indication: TYPE 2 DIABETES MELLITUS
     Dosage: THERAPY ON 17SEP13
     Route: 058
     Dates: start: 20130826
  2. METFORMIN [Concomitant]
  3. JANUVIA [Concomitant]

REACTIONS (4)
  - Weight decreased [Unknown]
  - Product quality issue [Unknown]
  - Circumstance or information capable of leading to medication error [Unknown]
  - Decreased appetite [Unknown]
